FAERS Safety Report 21712091 (Version 2)
Quarter: 2022Q4

REPORT INFORMATION
  Report Type: Spontaneous
  Country: SK (occurrence: SK)
  Receive Date: 20221212
  Receipt Date: 20221219
  Transmission Date: 20230113
  Serious: Yes (Hospitalization, Other)
  Sender: FDA-Public Use
  Company Number: SK-Basilea Medical Ltd.-SK-BAS-22-01038

PATIENT
  Age: 46 Year

DRUGS (2)
  1. CASPOFUNGIN [Suspect]
     Active Substance: CASPOFUNGIN
     Indication: Fungal infection
     Dosage: UNK
     Route: 065
  2. CRESEMBA [Suspect]
     Active Substance: ISAVUCONAZONIUM SULFATE
     Indication: Fungal infection
     Dosage: UNK
     Route: 065
     Dates: start: 20200521, end: 20200701

REACTIONS (3)
  - Generalised tonic-clonic seizure [Unknown]
  - Blood creatinine increased [Unknown]
  - Off label use [Unknown]
